FAERS Safety Report 7177865-6 (Version None)
Quarter: 2010Q4

REPORT INFORMATION
  Report Type: 
  Country: None (occurrence: None)
  Receive Date: 20101220
  Receipt Date: 20101213
  Transmission Date: 20110411
  Serious: Yes (Other)
  Sender: FDA-Public Use
  Company Number: JP-JNJFOC-20101203549

PATIENT
  Age: 61 Year
  Sex: Male

DRUGS (4)
  1. PEPCID AC [Suspect]
     Route: 048
  2. PEPCID AC [Suspect]
     Indication: GASTRODUODENAL ULCER
     Route: 048
  3. LIPITOR [Concomitant]
  4. ZYLORIC [Concomitant]

REACTIONS (2)
  - GAMMA-GLUTAMYLTRANSFERASE INCREASED [None]
  - GYNAECOMASTIA [None]
